FAERS Safety Report 9732125 (Version 1)
Quarter: 2013Q4

REPORT INFORMATION
  Report Type: Spontaneous
  Country: US (occurrence: US)
  Receive Date: 20131205
  Receipt Date: 20131205
  Transmission Date: 20140711
  Serious: Yes (Other)
  Sender: FDA-Public Use
  Company Number: US-BAYER-2013-147343

PATIENT
  Age: 21 Year
  Sex: Female
  Weight: 56.24 kg

DRUGS (6)
  1. OCELLA [Suspect]
  2. LORTAB [Concomitant]
     Dosage: 5 MG, PRN
  3. PENTASA [Concomitant]
     Dosage: 500 MG, BID
     Route: 048
  4. PEPCID [Concomitant]
     Dosage: 40 MG, UNK
  5. ZOFRAN [Concomitant]
     Dosage: 4 MG, UNK
  6. MORPHINE [Concomitant]

REACTIONS (2)
  - Cholelithiasis [None]
  - Cholecystectomy [None]
